FAERS Safety Report 19916964 (Version 1)
Quarter: 2021Q4

REPORT INFORMATION
  Report Type: Spontaneous
  Country: US (occurrence: US)
  Receive Date: 20211005
  Receipt Date: 20211005
  Transmission Date: 20220303
  Serious: Yes (Other)
  Sender: FDA-Public Use
  Company Number: US-DRREDDYS-LIT/USA/21/0142334

PATIENT
  Sex: Male

DRUGS (3)
  1. ISOTRETINOIN [Suspect]
     Active Substance: ISOTRETINOIN
     Indication: Dermatitis
  2. CYCLOSPORINE [Suspect]
     Active Substance: CYCLOSPORINE
     Indication: Dermatitis
  3. METHOTREXATE [Suspect]
     Active Substance: METHOTREXATE
     Indication: Dermatitis

REACTIONS (3)
  - Hypertension [Unknown]
  - Adrenal insufficiency [Unknown]
  - Short stature [Unknown]
